FAERS Safety Report 6618064-3 (Version None)
Quarter: 2010Q1

REPORT INFORMATION
  Report Type: 
  Country: None (occurrence: None)
  Receive Date: 20100308
  Receipt Date: 20100301
  Transmission Date: 20100710
  Serious: Yes (Other)
  Sender: FDA-Public Use
  Company Number: US-JNJCH-2010005380

PATIENT
  Age: 41 Year
  Sex: Male
  Weight: 95.3 kg

DRUGS (1)
  1. ZYRTEC [Suspect]
     Indication: EYE PRURITUS
     Route: 048
     Dates: start: 20100211, end: 20100213

REACTIONS (4)
  - ACTIVITIES OF DAILY LIVING IMPAIRED [None]
  - CONVULSION [None]
  - IMPAIRED WORK ABILITY [None]
  - MYALGIA [None]
